FAERS Safety Report 22099886 (Version 1)
Quarter: 2023Q1

REPORT INFORMATION
  Report Type: Report from Study
  Country: TW (occurrence: TW)
  Receive Date: 20230315
  Receipt Date: 20230315
  Transmission Date: 20230418
  Serious: Yes (Hospitalization)
  Sender: FDA-Public Use
  Company Number: TW-JNJFOC-20221229878

PATIENT
  Age: 61 Year
  Sex: Male
  Weight: 66.6 kg

DRUGS (11)
  1. AMIVANTAMAB [Suspect]
     Active Substance: AMIVANTAMAB
     Indication: Non-small cell lung cancer metastatic
     Route: 042
     Dates: start: 20220518, end: 20221123
  2. CARBOPLATIN [Concomitant]
     Active Substance: CARBOPLATIN
     Indication: Non-small cell lung cancer metastatic
     Route: 042
     Dates: start: 20220518, end: 20220720
  3. PEMETREXED [Concomitant]
     Active Substance: PEMETREXED
     Indication: Non-small cell lung cancer metastatic
     Route: 042
     Dates: start: 20220518, end: 20221123
  4. LYRICA [Concomitant]
     Active Substance: PREGABALIN
     Indication: Anal ulcer
     Route: 048
     Dates: start: 20220715
  5. OXYCODONE HYDROCHLORIDE [Concomitant]
     Active Substance: OXYCODONE HYDROCHLORIDE
     Indication: Non-small cell lung cancer
     Route: 048
     Dates: start: 20220921
  6. SENNOSIDES A AND B [Concomitant]
     Active Substance: SENNOSIDES A AND B
     Indication: Constipation prophylaxis
     Dosage: REPORTED AS THROUGH (SENNOSIDE)
     Route: 048
     Dates: start: 20220921
  7. CALCIUM ACETATE [Concomitant]
     Active Substance: CALCIUM ACETATE
     Indication: Metastases to bone
     Route: 048
     Dates: start: 20221012
  8. TOPSYM [Concomitant]
     Indication: Genital herpes
     Route: 061
     Dates: start: 20221020
  9. ACYCLOVIR [Concomitant]
     Active Substance: ACYCLOVIR
     Indication: Genital herpes
     Route: 061
     Dates: start: 20221020
  10. GENTAMYCINUM [Concomitant]
     Indication: Genital herpes
     Route: 061
     Dates: start: 20221020
  11. XYLMOL [Concomitant]
     Indication: Anal ulcer
     Route: 061
     Dates: start: 20221219

REACTIONS (1)
  - Embolism [Recovering/Resolving]

NARRATIVE: CASE EVENT DATE: 20221214
